FAERS Safety Report 6702995-X (Version None)
Quarter: 2010Q2

REPORT INFORMATION
  Report Type: 
  Country: None (occurrence: None)
  Receive Date: 20100429
  Receipt Date: 20100429
  Transmission Date: 20101027
  Serious: Yes (Hospitalization)
  Sender: FDA-Public Use
  Company Number: None

PATIENT
  Sex: Female
  Weight: 48.7 kg

DRUGS (2)
  1. TARCEVA [Suspect]
     Dosage: 150 MG DAY 1 THROUGH 28 ORAL
     Route: 048
     Dates: start: 20100405, end: 20100426
  2. VIDAZA [Suspect]
     Dosage: 150MG DAY 1 THROUGH 4 SUBCUTANEOUS
     Route: 058
     Dates: start: 20100405, end: 20100408

REACTIONS (5)
  - CATHETER SITE EROSION [None]
  - DEVICE LEAKAGE [None]
  - DISCOMFORT [None]
  - HAEMATOTOXICITY [None]
  - PAIN [None]
